FAERS Safety Report 12076511 (Version 2)
Quarter: 2016Q2

REPORT INFORMATION
  Report Type: Report from Study
  Country: PL (occurrence: PL)
  Receive Date: 20160215
  Receipt Date: 20160408
  Transmission Date: 20160815
  Serious: Yes (Hospitalization, Other)
  Sender: FDA-Public Use
  Company Number: PHHY2016PL006091

PATIENT
  Age: 66 Year
  Sex: Male
  Weight: 89 kg

DRUGS (9)
  1. AXUDAN HCT [Concomitant]
     Indication: PRODUCT USED FOR UNKNOWN INDICATION
     Dosage: 1 DF (25+12.5MG), QD
     Route: 065
     Dates: start: 20150730
  2. CORTARE [Concomitant]
     Active Substance: BECLOMETHASONE DIPROPIONATE
     Indication: PRODUCT USED FOR UNKNOWN INDICATION
     Dosage: 250 UG, BID
     Route: 065
     Dates: start: 20150901
  3. AXUDAN HCT [Concomitant]
     Dosage: 1 DF, QD (DOSE REDUCED)
     Route: 065
     Dates: start: 20160108
  4. NONPRES [Concomitant]
     Indication: PRODUCT USED FOR UNKNOWN INDICATION
     Dosage: 25 MG, QD
     Route: 065
     Dates: start: 20150730
  5. ONBREZ BREEZHALER [Suspect]
     Active Substance: INDACATEROL
     Indication: CHRONIC OBSTRUCTIVE PULMONARY DISEASE
     Dosage: 0.3 MG, QD
     Route: 055
     Dates: start: 20150904
  6. AXUDAN HCT [Concomitant]
     Dosage: 1 DF(25+160MG), QD (USED TWICE)
     Route: 065
  7. AVEDOL [Concomitant]
     Active Substance: CARVEDILOL
     Indication: PRODUCT USED FOR UNKNOWN INDICATION
     Dosage: 0.5 DF, BID
     Route: 065
     Dates: start: 20150730
  8. FUROSEMIDE. [Concomitant]
     Active Substance: FUROSEMIDE
     Indication: PRODUCT USED FOR UNKNOWN INDICATION
     Dosage: UNK, QD (1X1)
     Route: 065
     Dates: start: 20150730
  9. SPIRIVA [Concomitant]
     Active Substance: TIOTROPIUM BROMIDE MONOHYDRATE
     Indication: PRODUCT USED FOR UNKNOWN INDICATION
     Dosage: UNK UNK, QD
     Route: 065
     Dates: start: 20150901

REACTIONS (12)
  - Insomnia [Unknown]
  - Productive cough [Unknown]
  - Lung neoplasm malignant [Unknown]
  - Fatigue [Unknown]
  - Dyspnoea [Unknown]
  - General physical health deterioration [Unknown]
  - Small cell lung cancer [Unknown]
  - Oedema peripheral [Unknown]
  - Chronic obstructive pulmonary disease [Unknown]
  - Cardiac failure chronic [Not Recovered/Not Resolved]
  - Malaise [Unknown]
  - Circulatory collapse [Unknown]

NARRATIVE: CASE EVENT DATE: 201601
